FAERS Safety Report 9752244 (Version 1)
Quarter: 2013Q4

REPORT INFORMATION
  Report Type: Spontaneous
  Country: CA (occurrence: None)
  Receive Date: 20131211
  Receipt Date: 20131211
  Transmission Date: 20140711
  Serious: Yes (Life-Threatening, Hospitalization)
  Sender: FDA-Public Use
  Company Number: 2013AP010192

PATIENT
  Age: 75 Year
  Sex: Female

DRUGS (6)
  1. CLARITHROMYCIN (CLARITHROMYCIN) [Suspect]
     Indication: PNEUMONIA
     Route: 042
  2. CEFTRIAXONE [Concomitant]
  3. METOPROLOL [Concomitant]
  4. HYDROCHLOROTHIAZIDE W/LOSARTAN [Concomitant]
  5. CRESTOR [Concomitant]
  6. PLAVIX /01220701/ (CLOPIDOGREL) [Concomitant]

REACTIONS (12)
  - Long QT syndrome [None]
  - Torsade de pointes [None]
  - Cardiac arrest [None]
  - Cough [None]
  - Malaise [None]
  - Tremor [None]
  - Asthenia [None]
  - Hypokalaemia [None]
  - Leukocytosis [None]
  - Hypomagnesaemia [None]
  - Tremor [None]
  - Ventricular fibrillation [None]
